FAERS Safety Report 19058696 (Version 2)
Quarter: 2021Q2

REPORT INFORMATION
  Report Type: Report from Study
  Country: None (occurrence: US)
  Receive Date: 20210325
  Receipt Date: 20210406
  Transmission Date: 20210717
  Serious: Yes (Hospitalization, Other)
  Sender: FDA-Public Use
  Company Number: US-ABBVIE-21K-163-3831342-00

PATIENT
  Age: 74 Year
  Sex: Male
  Weight: 115.77 kg

DRUGS (1)
  1. SKYRIZI [Suspect]
     Active Substance: RISANKIZUMAB-RZAA
     Indication: PSORIASIS
     Route: 058
     Dates: start: 202010, end: 202103

REACTIONS (6)
  - Fall [Recovering/Resolving]
  - Limb injury [Recovering/Resolving]
  - Osteoarthritis [Recovering/Resolving]
  - Needle issue [Recovered/Resolved]
  - Arthralgia [Recovering/Resolving]
  - Meningitis viral [Recovered/Resolved]

NARRATIVE: CASE EVENT DATE: 2020
